FAERS Safety Report 5761244-X (Version None)
Quarter: 2008Q2

REPORT INFORMATION
  Report Type: 
  Country: None (occurrence: None)
  Receive Date: 20080606
  Receipt Date: 20080528
  Transmission Date: 20081010
  Serious: Yes (Other)
  Sender: FDA-Public Use
  Company Number: US-JNJFOC-20080505932

PATIENT
  Sex: Male
  Weight: 79.83 kg

DRUGS (4)
  1. DOXORUBICIN HCL [Suspect]
     Indication: PROSTATE CANCER
     Route: 042
  2. THALIDOMIDE [Suspect]
     Route: 048
  3. THALIDOMIDE [Suspect]
     Route: 048
  4. THALIDOMIDE [Suspect]
     Indication: PROSTATE CANCER
     Route: 048

REACTIONS (2)
  - ARTHRALGIA [None]
  - FALL [None]
